FAERS Safety Report 25104061 (Version 1)
Quarter: 2025Q1

REPORT INFORMATION
  Report Type: Spontaneous
  Country: FR (occurrence: FR)
  Receive Date: 20250321
  Receipt Date: 20250321
  Transmission Date: 20250408
  Serious: Yes (Hospitalization, Other)
  Sender: AUROBINDO
  Company Number: FR-AFSSAPS-AVMA2025000103

PATIENT
  Age: 44 Year
  Sex: Male

DRUGS (4)
  1. DIAZEPAM [Suspect]
     Active Substance: DIAZEPAM
     Indication: Product used for unknown indication
     Route: 065
  2. COCAINE [Suspect]
     Active Substance: COCAINE
     Indication: Product used for unknown indication
     Route: 065
  3. OXAZEPAM [Suspect]
     Active Substance: OXAZEPAM
     Indication: Product used for unknown indication
     Route: 065
  4. PHENACETIN [Suspect]
     Active Substance: PHENACETIN
     Indication: Product used for unknown indication
     Route: 065

REACTIONS (5)
  - Coma [Recovered/Resolved]
  - Agitation [Recovered/Resolved]
  - Mydriasis [Recovered/Resolved]
  - Substance use disorder [Unknown]
  - Drug use disorder [Unknown]
